FAERS Safety Report 12000279 (Version 1)
Quarter: 2016Q1

REPORT INFORMATION
  Report Type: Report from Study
  Country: BR (occurrence: BR)
  Receive Date: 20160204
  Receipt Date: 20160204
  Transmission Date: 20160526
  Serious: No
  Sender: FDA-Public Use
  Company Number: BR-ABBVIE-16K-020-1548496-00

PATIENT
  Age: 25 Year
  Sex: Female
  Weight: 83 kg

DRUGS (22)
  1. EXIMIA FORTALIZE [Concomitant]
     Indication: HAIR DISORDER
     Route: 048
     Dates: start: 2015
  2. ALLEGRA-D [Concomitant]
     Active Substance: FEXOFENADINE\PSEUDOEPHEDRINE
     Indication: ANTIALLERGIC THERAPY
     Route: 048
     Dates: start: 2015
  3. DIPROSALIC [Concomitant]
     Active Substance: BETAMETHASONE DIPROPIONATE
     Indication: PSORIASIS
  4. VITAMIN D [Concomitant]
     Active Substance: CHOLECALCIFEROL
     Indication: VITAMIN SUPPLEMENTATION
     Route: 048
     Dates: start: 2015
  5. OMEPRAZOL [Concomitant]
     Active Substance: OMEPRAZOLE
     Indication: GASTRIC DISORDER
     Route: 048
  6. ALENIA [Concomitant]
     Active Substance: BUDESONIDE\FORMOTEROL FUMARATE
     Indication: DYSPNOEA
     Route: 055
     Dates: start: 201512
  7. SUMATRIPTAN. [Concomitant]
     Active Substance: SUMATRIPTAN
     Indication: PHOTOSENSITIVITY REACTION
     Route: 061
  8. CETAPHIL [Concomitant]
     Active Substance: AVOBENZONE\OCTOCRYLENE\TRICLOSAN
     Indication: DRY SKIN
     Dosage: FORM STRENGTH: 200 OR 250
     Route: 061
     Dates: start: 2015
  9. CETAPHIL [Concomitant]
     Active Substance: AVOBENZONE\OCTOCRYLENE\TRICLOSAN
     Indication: SKIN DISORDER
     Dates: start: 2015
  10. THERAPSOR [Concomitant]
     Indication: SKIN DISORDER
  11. ORLISTAT [Concomitant]
     Active Substance: ORLISTAT
     Indication: LIVER DISORDER
     Route: 048
     Dates: start: 2015
  12. VELIJA [Concomitant]
     Active Substance: DULOXETINE HYDROCHLORIDE
     Indication: ANXIETY
     Route: 048
     Dates: start: 2015
  13. CODEINE [Concomitant]
     Active Substance: CODEINE
     Indication: PAIN
  14. HUMIRA [Suspect]
     Active Substance: ADALIMUMAB
     Indication: PSORIASIS
     Route: 058
     Dates: start: 20141231, end: 20151213
  15. HYDROXYZINE [Concomitant]
     Active Substance: HYDROXYZINE\HYDROXYZINE HYDROCHLORIDE
     Indication: PSORIASIS
     Route: 048
  16. OMEGA 3 + 6 COMPLEX [Concomitant]
     Indication: PRODUCT USED FOR UNKNOWN INDICATION
     Route: 048
  17. CETAPHIL [Concomitant]
     Active Substance: AVOBENZONE\OCTOCRYLENE\TRICLOSAN
     Indication: PROPHYLAXIS
  18. EXIMIA FORTALIZE [Concomitant]
     Indication: NAIL DISORDER
  19. METHOTREXATE [Concomitant]
     Active Substance: METHOTREXATE
     Indication: PSORIASIS
  20. METHOTREXATE [Concomitant]
     Active Substance: METHOTREXATE
  21. EXIMIA FORTALIZE [Concomitant]
     Indication: SKIN DISORDER
  22. LASIX [Concomitant]
     Active Substance: FUROSEMIDE
     Indication: DIURETIC THERAPY
     Route: 048
     Dates: start: 2008

REACTIONS (2)
  - Uterine neoplasm [Not Recovered/Not Resolved]
  - Rash macular [Unknown]

NARRATIVE: CASE EVENT DATE: 201511
